FAERS Safety Report 12919783 (Version 1)
Quarter: 2016Q4

REPORT INFORMATION
  Report Type: Spontaneous
  Country: US (occurrence: US)
  Receive Date: 20161103
  Receipt Date: 20161103
  Transmission Date: 20170207
  Serious: No
  Sender: FDA-Public Use
  Company Number: None

PATIENT
  Age: 37 Year
  Sex: Male

DRUGS (1)
  1. AMIKACIN 800 MG FRESENIUS KABI [Suspect]
     Active Substance: AMIKACIN
     Indication: PRODUCT USED FOR UNKNOWN INDICATION
     Route: 042
     Dates: start: 20160625, end: 20161005

REACTIONS (2)
  - Deafness [None]
  - Therapy cessation [None]

NARRATIVE: CASE EVENT DATE: 20160917
